FAERS Safety Report 12469164 (Version 2)
Quarter: 2016Q4

REPORT INFORMATION
  Report Type: Spontaneous
  Country: US (occurrence: US)
  Receive Date: 20160615
  Receipt Date: 20161108
  Transmission Date: 20170207
  Serious: No
  Sender: FDA-Public Use
  Company Number: US-GLAXOSMITHKLINE-US2016078735

PATIENT
  Age: 72 Year
  Sex: Male

DRUGS (3)
  1. PANTOPRAZOLE [Concomitant]
     Active Substance: PANTOPRAZOLE SODIUM
  2. MEPRON [Suspect]
     Active Substance: ATOVAQUONE
     Indication: IMMUNE THROMBOCYTOPENIC PURPURA
     Dosage: 5 ML, BID
     Route: 048
     Dates: start: 201604, end: 20160527
  3. PREDNISONE. [Concomitant]
     Active Substance: PREDNISONE

REACTIONS (5)
  - Throat tightness [Recovering/Resolving]
  - Product use issue [Unknown]
  - Pharyngeal oedema [Recovering/Resolving]
  - Dysphonia [Recovering/Resolving]
  - Fatigue [Recovering/Resolving]

NARRATIVE: CASE EVENT DATE: 201605
